FAERS Safety Report 16383295 (Version 2)
Quarter: 2019Q2

REPORT INFORMATION
  Report Type: Spontaneous
  Country: US (occurrence: US)
  Receive Date: 20190603
  Receipt Date: 20190604
  Transmission Date: 20190711
  Serious: No
  Sender: FDA-Public Use
  Company Number: US-PFIZER INC-2019230529

PATIENT
  Age: 76 Year
  Sex: Female
  Weight: 79 kg

DRUGS (1)
  1. ESTRING [Suspect]
     Active Substance: ESTRADIOL
     Dosage: 2 MG
     Route: 067
     Dates: start: 20190405

REACTIONS (2)
  - Urinary tract infection [Not Recovered/Not Resolved]
  - Malaise [Unknown]
